FAERS Safety Report 16688610 (Version 1)
Quarter: 2019Q4

REPORT INFORMATION
  Report Type: Spontaneous
  Country: US (occurrence: US)
  Receive Date: 20190809
  Receipt Date: 20190809
  Transmission Date: 20200122
  Serious: No
  Sender: FDA-Public Use
  Company Number: None

PATIENT
  Sex: Male

DRUGS (2)
  1. TELMISARTAN. [Suspect]
     Active Substance: TELMISARTAN
  2. OLMESARTAN [Suspect]
     Active Substance: OLMESARTAN

REACTIONS (2)
  - Treatment failure [None]
  - Drug intolerance [None]
